FAERS Safety Report 15854433 (Version 1)
Quarter: 2019Q1

REPORT INFORMATION
  Report Type: Spontaneous
  Country: GB (occurrence: GB)
  Receive Date: 20190122
  Receipt Date: 20190122
  Transmission Date: 20190417
  Serious: Yes (Hospitalization, Other)
  Sender: FDA-Public Use
  Company Number: GB-VELOXIS PHARMACEUTICALS, INC.-2019VELGB1355

PATIENT
  Age: 37 Year
  Sex: Male

DRUGS (10)
  1. AMLODIPINE [Concomitant]
     Active Substance: AMLODIPINE BESYLATE
     Indication: HYPERTENSION
  2. PREDNISOLONE. [Suspect]
     Active Substance: PREDNISOLONE
     Dosage: 30 MG, QD
     Route: 048
  3. ENVARSUS XR [Suspect]
     Active Substance: TACROLIMUS
     Indication: BEHCET^S SYNDROME
     Dosage: 2 MG, BID
     Route: 065
  4. PREDNISOLONE. [Suspect]
     Active Substance: PREDNISOLONE
     Dosage: 15 MG, QD
     Route: 048
  5. AZATHIOPRINE. [Concomitant]
     Active Substance: AZATHIOPRINE
     Indication: BEHCET^S SYNDROME
     Dosage: 50 MG, BID
     Route: 048
  6. PREDNISOLONE. [Suspect]
     Active Substance: PREDNISOLONE
     Indication: BEHCET^S SYNDROME
     Dosage: 80 MG, QD
     Route: 048
  7. ENVARSUS XR [Suspect]
     Active Substance: TACROLIMUS
     Indication: RETINAL VASCULITIS
  8. ENVARSUS XR [Suspect]
     Active Substance: TACROLIMUS
     Indication: UVEITIS
  9. ADALIMUMAB [Suspect]
     Active Substance: ADALIMUMAB
     Indication: RETINAL VASCULITIS
     Dosage: 40 MG, FORTNIGHTLY
     Route: 058
  10. PREDNISOLONE. [Suspect]
     Active Substance: PREDNISOLONE
     Dosage: 30 MG, QD
     Route: 048

REACTIONS (3)
  - Intentional product use issue [Unknown]
  - Disseminated tuberculosis [Unknown]
  - Intentional product misuse [Unknown]
